FAERS Safety Report 17767022 (Version 3)
Quarter: 2020Q2

REPORT INFORMATION
  Report Type: Report from Study
  Country: IN (occurrence: IN)
  Receive Date: 20200511
  Receipt Date: 20200603
  Transmission Date: 20200714
  Serious: Yes (Death, Life-Threatening, Hospitalization)
  Sender: FDA-Public Use
  Company Number: IN-PFIZER INC-2020185452

PATIENT
  Age: 53 Year
  Sex: Female
  Weight: 56.3 kg

DRUGS (2)
  1. TENEFIT M [Concomitant]
     Indication: DIABETES MELLITUS
     Dosage: UNK, 1X/DAY
  2. DACOMITINIB [Suspect]
     Active Substance: DACOMITINIB
     Indication: LUNG NEOPLASM MALIGNANT
     Dosage: 45 MG, 1X/DAY
     Route: 048
     Dates: start: 20200320

REACTIONS (4)
  - Neoplasm progression [Fatal]
  - Dyspnoea [Fatal]
  - Respiratory distress [Fatal]
  - Malaise [Fatal]

NARRATIVE: CASE EVENT DATE: 20200503
